FAERS Safety Report 10784168 (Version 1)
Quarter: 2015Q1

REPORT INFORMATION
  Report Type: Spontaneous
  Country: US (occurrence: US)
  Receive Date: 20150211
  Receipt Date: 20150211
  Transmission Date: 20150721
  Serious: No
  Sender: FDA-Public Use
  Company Number: US-ASTRAZENECA-2015SE10701

PATIENT
  Age: 555 Month
  Sex: Female
  Weight: 58.5 kg

DRUGS (2)
  1. SYMBICORT [Suspect]
     Active Substance: BUDESONIDE\FORMOTEROL FUMARATE DIHYDRATE
     Indication: ASTHMA
     Dosage: 80/4.5 MCG 2 PUFFS TWICE A DAY
     Route: 055
     Dates: start: 201409
  2. PROAIR HFA [Concomitant]
     Active Substance: ALBUTEROL SULFATE
     Indication: ASTHMA
     Route: 055
     Dates: start: 201409, end: 201501

REACTIONS (10)
  - Nasopharyngitis [Unknown]
  - Dyspnoea [Unknown]
  - Body height decreased [Not Recovered/Not Resolved]
  - Adverse event [Unknown]
  - Erythema [Unknown]
  - Feeling abnormal [Unknown]
  - Rhinorrhoea [Unknown]
  - Sneezing [Unknown]
  - Intentional product misuse [Not Recovered/Not Resolved]
  - Drug dose omission [Not Recovered/Not Resolved]

NARRATIVE: CASE EVENT DATE: 201409
